FAERS Safety Report 7764115-2 (Version None)
Quarter: 2011Q3

REPORT INFORMATION
  Report Type: 
  Country: None (occurrence: None)
  Receive Date: 20110921
  Receipt Date: 20110909
  Transmission Date: 20111222
  Serious: Yes (Life-Threatening, Hospitalization, Other)
  Sender: FDA-Public Use
  Company Number: US-ELI_LILLY_AND_COMPANY-US201107002003

PATIENT
  Sex: Female

DRUGS (19)
  1. LEVOTHYROXINE SODIUM [Concomitant]
  2. CALCIUM CARBONATE [Concomitant]
  3. PROZAC [Concomitant]
  4. TAZIDIME [Concomitant]
  5. LIPITOR [Concomitant]
  6. FERROUS SULFATE TAB [Concomitant]
  7. DILAUDID [Concomitant]
  8. NEURONTIN [Concomitant]
  9. DOCUSATE SODIUM [Concomitant]
  10. GABAPENTIN [Concomitant]
  11. CELEBREX [Concomitant]
  12. FLUOXETINE [Concomitant]
  13. BYSTOLIC [Concomitant]
  14. MULTI-VITAMIN [Concomitant]
  15. MORPHINE SULFATE [Concomitant]
  16. FORTEO [Suspect]
     Indication: OSTEOPOROSIS
     Dosage: 20 UG, QD
     Route: 065
     Dates: start: 20110625, end: 20110720
  17. FENTANYL [Concomitant]
  18. OXYCODONE HCL [Concomitant]
  19. LUNESTA [Concomitant]

REACTIONS (7)
  - CARDIAC FAILURE CONGESTIVE [None]
  - RESPIRATORY FAILURE [None]
  - RENAL FAILURE ACUTE [None]
  - SPINAL DEFORMITY [None]
  - INJECTION SITE ERYTHEMA [None]
  - CYSTITIS [None]
  - ELECTROLYTE IMBALANCE [None]
